FAERS Safety Report 5711466-9 (Version None)
Quarter: 2008Q2

REPORT INFORMATION
  Report Type: 
  Country: None (occurrence: None)
  Receive Date: 20080421
  Receipt Date: 20071128
  Transmission Date: 20081010
  Serious: Yes (Other)
  Sender: FDA-Public Use
  Company Number: AU-MERCK-0711AUS00141

PATIENT
  Sex: Female

DRUGS (2)
  1. FOSAMAX PLUS D [Suspect]
     Route: 048
  2. ALENDRONATE SODIUM [Concomitant]
     Route: 065
     Dates: start: 20020101

REACTIONS (2)
  - LUMBAR VERTEBRAL FRACTURE [None]
  - OSTEONECROSIS [None]
